FAERS Safety Report 8037979-5 (Version None)
Quarter: 2012Q1

REPORT INFORMATION
  Report Type: 
  Country: None (occurrence: None)
  Receive Date: 20120111
  Receipt Date: 20120104
  Transmission Date: 20120608
  Serious: Yes (Other)
  Sender: FDA-Public Use
  Company Number: NL-PFIZER INC-2012003062

PATIENT
  Age: 55 Year
  Sex: Female
  Weight: 73 kg

DRUGS (10)
  1. THYRAX [Concomitant]
     Dosage: 0.025 MG, 1X/DAY
     Dates: start: 20020402
  2. FOSAMAX [Concomitant]
     Dosage: 70 MG, WEEKLY
     Dates: start: 20030523, end: 20080901
  3. CALCIUM CARBONATE [Suspect]
     Indication: OSTEOPOROSIS
     Dosage: 1 DF, 1X/DAY
     Dates: start: 20051128
  4. HYDROCORTISONE SODIUM SUCCINATE [Suspect]
     Indication: HYPOPITUITARISM
     Dosage: 10 MG, 1X/DAY
     Dates: start: 20020518
  5. CALCIUM CARBONATE [Concomitant]
     Dosage: 1000 MG, 1X/DAY
     Dates: start: 20040226, end: 20050613
  6. NORDITROPIN [Concomitant]
     Dosage: UNK
     Dates: start: 19960509
  7. PENTASA [Concomitant]
     Dosage: UNK
     Dates: start: 20090420, end: 20101222
  8. THYRAX [Concomitant]
     Dosage: 0.1 MG, 1X/DAY
     Dates: start: 19960509
  9. OMEPRAZOLE [Concomitant]
     Dosage: 20 MG, AS NEEDED
     Dates: start: 20091207
  10. SALBUTAMOL [Concomitant]
     Dosage: UNK
     Dates: start: 19971113, end: 20111021

REACTIONS (1)
  - TEETH BRITTLE [None]
